FAERS Safety Report 9384207 (Version 1)
Quarter: 2013Q3

REPORT INFORMATION
  Report Type: Report from Study
  Country: CA (occurrence: CA)
  Receive Date: 20130705
  Receipt Date: 20130705
  Transmission Date: 20140515
  Serious: Yes (Hospitalization)
  Sender: FDA-Public Use
  Company Number: CA-ROCHE-1239552

PATIENT
  Age: 79 Year
  Sex: Female

DRUGS (7)
  1. CAPECITABINE [Suspect]
     Indication: PRODUCT USED FOR UNKNOWN INDICATION
     Route: 065
  2. LAPATINIB DITOSYLATE [Suspect]
     Indication: PRODUCT USED FOR UNKNOWN INDICATION
     Route: 048
  3. ATIVAN [Concomitant]
     Route: 065
  4. DOMPERIDONE [Concomitant]
     Route: 065
  5. FEMARA [Concomitant]
     Route: 065
  6. FRAGMIN [Concomitant]
     Route: 042
  7. PANTOLOC [Concomitant]
     Route: 065

REACTIONS (17)
  - Blood calcium decreased [Recovered/Resolved]
  - Blood potassium decreased [Recovered/Resolved]
  - Breast discharge [Recovered/Resolved]
  - Decreased appetite [Recovered/Resolved]
  - Diarrhoea [Recovered/Resolved]
  - Dry skin [Recovered/Resolved]
  - Ear infection [Recovered/Resolved]
  - Eczema [Recovered/Resolved]
  - Erythema [Recovered/Resolved]
  - Metastases to bone [Recovered/Resolved]
  - Nail infection [Recovered/Resolved]
  - Onychoclasis [Recovered/Resolved]
  - Palmar-plantar erythrodysaesthesia syndrome [Recovered/Resolved]
  - Radiation skin injury [Recovered/Resolved]
  - Rhinitis [Recovered/Resolved]
  - Wound infection [Recovered/Resolved]
  - Oropharyngeal pain [Recovered/Resolved]
